FAERS Safety Report 8548871-1 (Version None)
Quarter: 2012Q3

REPORT INFORMATION
  Report Type: 
  Country: None (occurrence: None)
  Receive Date: 20120730
  Receipt Date: 20120726
  Transmission Date: 20120928
  Serious: Yes (Death, Life-Threatening, Hospitalization, Disabling, Other)
  Sender: FDA-Public Use
  Company Number: PHHY2011JP77341

PATIENT
  Age: 80 Year
  Sex: Male

DRUGS (1)
  1. ZOMETA [Suspect]
     Indication: MULTIPLE MYELOMA
     Dosage: UNK UKN, QMO
     Dates: start: 20070101

REACTIONS (10)
  - FISTULA [None]
  - HEPATIC NEOPLASM MALIGNANT [None]
  - OSTEONECROSIS OF JAW [None]
  - PERIODONTITIS [None]
  - NEOPLASM MALIGNANT [None]
  - TOOTH LOSS [None]
  - HYPOPHAGIA [None]
  - OSTEITIS [None]
  - PAIN IN JAW [None]
  - EXPOSED BONE IN JAW [None]
